FAERS Safety Report 8199361 (Version 4)
Quarter: 2012Q4

REPORT INFORMATION
  Report Type: 
  Country: CA (occurrence: CA)
  Receive Date: 20111025
  Receipt Date: 20120914
  Transmission Date: 20130627
  Serious: Yes (Disabling, Other)
  Sender: FDA-Public Use
  Company Number: CA-BAYER-2011-099812

PATIENT
  Age: 50 Year
  Sex: Male
  Weight: 79 kg

DRUGS (5)
  1. AVELOX [Suspect]
     Indication: PNEUMONIA
     Dosage: 400 mg, QD
     Route: 048
     Dates: start: 20100430, end: 20100510
  2. AVELOX [Suspect]
     Indication: SINUSITIS
  3. AVELOX [Suspect]
     Indication: BRONCHITIS
  4. ACCUTANE [Concomitant]
     Indication: ACNE
     Dosage: dose: 40mg (1 capsule) once every
  5. ISOTRETINOIN [Concomitant]
     Indication: ACNE
     Dosage: frequency: 1 - 10 days for 15 years until june 2016.

REACTIONS (77)
  - Nervous system disorder [Not Recovered/Not Resolved]
  - Neuropathy peripheral [Not Recovered/Not Resolved]
  - Paraesthesia [Not Recovered/Not Resolved]
  - Paraesthesia [Not Recovered/Not Resolved]
  - Parosmia [Not Recovered/Not Resolved]
  - Palpitations [None]
  - Feeling abnormal [None]
  - Dizziness [Not Recovered/Not Resolved]
  - Balance disorder [Not Recovered/Not Resolved]
  - Disturbance in attention [Not Recovered/Not Resolved]
  - Aura [Not Recovered/Not Resolved]
  - Chills [None]
  - Diarrhoea [Not Recovered/Not Resolved]
  - Night sweats [None]
  - Blood urine present [None]
  - Pain in extremity [None]
  - Muscular weakness [None]
  - Headache [Not Recovered/Not Resolved]
  - Nasal congestion [Not Recovered/Not Resolved]
  - Parosmia [None]
  - Renal failure [Not Recovered/Not Resolved]
  - Thirst [Not Recovered/Not Resolved]
  - Abdominal discomfort [None]
  - Skin discolouration [None]
  - Vein discolouration [None]
  - Chest pain [None]
  - Hot flush [None]
  - Formication [None]
  - Tinnitus [Not Recovered/Not Resolved]
  - Muscle contractions involuntary [Not Recovered/Not Resolved]
  - Skin disorder [None]
  - Muscle contractions involuntary [Not Recovered/Not Resolved]
  - Coordination abnormal [None]
  - Feeling abnormal [None]
  - Vitreous floaters [Not Recovered/Not Resolved]
  - Visual impairment [None]
  - Limb discomfort [None]
  - Sensation of heaviness [Not Recovered/Not Resolved]
  - Myasthenic syndrome [Not Recovered/Not Resolved]
  - Head discomfort [None]
  - Vision blurred [Not Recovered/Not Resolved]
  - Panic attack [None]
  - Suicidal ideation [None]
  - Convulsion [Not Recovered/Not Resolved]
  - Anxiety [Not Recovered/Not Resolved]
  - Feeling abnormal [None]
  - Adverse event [None]
  - Adverse event [None]
  - Amnesia [None]
  - Abnormal dreams [None]
  - Night blindness [None]
  - Meteoropathy [None]
  - Oropharyngeal pain [None]
  - Body temperature decreased [Not Recovered/Not Resolved]
  - Parosmia [None]
  - Diarrhoea [None]
  - Arthritis infective [None]
  - Dyspepsia [None]
  - Chest discomfort [None]
  - Dissociative identity disorder [None]
  - Feeling abnormal [None]
  - Cerebral disorder [None]
  - Nasal congestion [None]
  - Arthralgia [Not Recovered/Not Resolved]
  - Blood pressure fluctuation [Not Recovered/Not Resolved]
  - Dyspnoea [Not Recovered/Not Resolved]
  - Energy increased [Not Recovered/Not Resolved]
  - External ear disorder [None]
  - Heart rate abnormal [Not Recovered/Not Resolved]
  - Pain [Not Recovered/Not Resolved]
  - Pain in extremity [Not Recovered/Not Resolved]
  - Psychomotor hyperactivity [Not Recovered/Not Resolved]
  - Purpura [Not Recovered/Not Resolved]
  - Rhinorrhoea [Not Recovered/Not Resolved]
  - Throat irritation [Not Recovered/Not Resolved]
  - Feeling abnormal [Not Recovered/Not Resolved]
  - Palpitations [Not Recovered/Not Resolved]
